FAERS Safety Report 4960258-7 (Version None)
Quarter: 2006Q2

REPORT INFORMATION
  Report Type: 
  Country: None (occurrence: None)
  Receive Date: 20060403
  Receipt Date: 20060324
  Transmission Date: 20061013
  Serious: Yes (Hospitalization, Other)
  Sender: FDA-Public Use
  Company Number: SE-JNJFOC-20060306684

PATIENT
  Age: 61 Year
  Sex: Male

DRUGS (18)
  1. REMICADE [Suspect]
     Route: 042
  2. REMICADE [Suspect]
     Indication: RHEUMATOID ARTHRITIS
     Route: 042
  3. ARTONIL [Concomitant]
  4. ATENOLOL [Concomitant]
  5. PREDNISOLONE [Concomitant]
  6. GLIBENKLAMID [Concomitant]
  7. CALCICHEW-D3 [Concomitant]
  8. CALCICHEW-D3 [Concomitant]
  9. TROMBYL [Concomitant]
  10. OPTINATE SEPTIMUM [Concomitant]
  11. ALVEDON [Concomitant]
  12. TRADOLAN RETARD [Concomitant]
  13. TRIOBE [Concomitant]
  14. TRIOBE [Concomitant]
  15. TRIOBE [Concomitant]
  16. IMUREL [Concomitant]
  17. AERIUS [Concomitant]
  18. AERIUS [Concomitant]

REACTIONS (6)
  - BACK PAIN [None]
  - CHILLS [None]
  - HYPERHIDROSIS [None]
  - INFUSION RELATED REACTION [None]
  - NAUSEA [None]
  - TREMOR [None]
